FAERS Safety Report 14102056 (Version 1)
Quarter: 2017Q4

REPORT INFORMATION
  Report Type: Spontaneous
  Country: GB (occurrence: GB)
  Receive Date: 20171018
  Receipt Date: 20171018
  Transmission Date: 20180321
  Serious: Yes (Other)
  Sender: FDA-Public Use
  Company Number: PHHY2017GB150844

PATIENT
  Age: 58 Year
  Sex: Male

DRUGS (1)
  1. METHYLPREDNISOLONE. [Suspect]
     Active Substance: METHYLPREDNISOLONE
     Indication: PLASMA CELL MYELOMA
     Dosage: 3 COURSES OF 50 MILLIGRAMS INTRAVENOUS METHYLPREDNISOLONE FOR THREE DAYS
     Route: 042

REACTIONS (1)
  - Osteonecrosis [Recovered/Resolved]
